FAERS Safety Report 17252515 (Version 1)
Quarter: 2020Q1

REPORT INFORMATION
  Report Type: Spontaneous
  Country: US (occurrence: US)
  Receive Date: 20200109
  Receipt Date: 20200109
  Transmission Date: 20200409
  Serious: No
  Sender: FDA-Public Use
  Company Number: US-BAUSCH-BL-2020-000161

PATIENT
  Sex: Female

DRUGS (1)
  1. DIASTAT [Suspect]
     Active Substance: DIAZEPAM
     Indication: FEBRILE CONVULSION
     Route: 065

REACTIONS (1)
  - Therapeutic product effect incomplete [Unknown]
